FAERS Safety Report 6498771-6 (Version None)
Quarter: 2009Q4

REPORT INFORMATION
  Report Type: 
  Country: None (occurrence: None)
  Receive Date: 20091127
  Receipt Date: 20090810
  Transmission Date: 20100525
  Serious: Yes (Other)
  Sender: FDA-Public Use
  Company Number: 289333

PATIENT
  Age: 65 Year
  Sex: Male

DRUGS (13)
  1. NOVOLOG [Suspect]
     Indication: INSULIN-REQUIRING TYPE 2 DIABETES MELLITUS
     Dosage: SEE IMAGE
     Route: 058
     Dates: start: 20040101, end: 20090708
  2. NOVOLOG [Suspect]
     Indication: INSULIN-REQUIRING TYPE 2 DIABETES MELLITUS
     Dosage: SEE IMAGE
     Route: 058
     Dates: start: 20090708, end: 20090708
  3. NOVOLOG [Suspect]
     Indication: INSULIN-REQUIRING TYPE 2 DIABETES MELLITUS
     Dosage: SEE IMAGE
     Route: 058
     Dates: start: 20090709, end: 20090709
  4. NOVOLOG [Suspect]
     Indication: INSULIN-REQUIRING TYPE 2 DIABETES MELLITUS
     Dosage: SEE IMAGE
     Route: 058
     Dates: start: 20090710
  5. NOVOLOG [Suspect]
  6. NOVOLIN N [Suspect]
     Indication: INSULIN-REQUIRING TYPE 2 DIABETES MELLITUS
     Dosage: SEE IMAGE
     Route: 058
     Dates: start: 20090708, end: 20090708
  7. NOVOLIN N [Suspect]
     Indication: INSULIN-REQUIRING TYPE 2 DIABETES MELLITUS
     Dosage: SEE IMAGE
     Route: 058
     Dates: start: 20090709, end: 20090709
  8. NOVOLIN N [Suspect]
     Indication: INSULIN-REQUIRING TYPE 2 DIABETES MELLITUS
     Dosage: SEE IMAGE
     Route: 058
     Dates: start: 20050101
  9. NOVOLIN N [Suspect]
     Indication: INSULIN-REQUIRING TYPE 2 DIABETES MELLITUS
     Dosage: SEE IMAGE
     Route: 058
     Dates: start: 20090710
  10. FUROSEMIDE [Concomitant]
  11. LABETALOL HCL [Concomitant]
  12. HYDRALAZINE HCL [Concomitant]
  13. CLONIDINE [Concomitant]

REACTIONS (5)
  - BODY TEMPERATURE DECREASED [None]
  - HYPERGLYCAEMIA [None]
  - HYPOGLYCAEMIA [None]
  - HYPOGLYCAEMIC UNCONSCIOUSNESS [None]
  - INCORRECT STORAGE OF DRUG [None]
